FAERS Safety Report 25626877 (Version 2)
Quarter: 2025Q3

REPORT INFORMATION
  Report Type: Spontaneous
  Country: EU (occurrence: EU)
  Receive Date: 20250731
  Receipt Date: 20250805
  Transmission Date: 20251021
  Serious: Yes (Hospitalization, Other)
  Sender: BOEHRINGER INGELHEIM
  Company Number: EU-OLPHA-2025000057

PATIENT
  Age: 60 Year
  Sex: Female

DRUGS (9)
  1. MELOXICAM [Suspect]
     Active Substance: MELOXICAM
     Indication: Product used for unknown indication
     Dosage: SOL. MELOXICAMI 15 MG/1,5 ML
     Dates: start: 201512, end: 201601
  2. IPIDACRINE [Suspect]
     Active Substance: IPIDACRINE
     Indication: Product used for unknown indication
     Dates: start: 201512, end: 201601
  3. MELDONIUM [Suspect]
     Active Substance: MELDONIUM
     Indication: Product used for unknown indication
     Dates: start: 201512, end: 201601
  4. PAROXETINE [Suspect]
     Active Substance: PAROXETINE
     Indication: Product used for unknown indication
     Dates: start: 201512, end: 201601
  5. CHOLECALCIFEROL [Suspect]
     Active Substance: CHOLECALCIFEROL
     Indication: Product used for unknown indication
     Dates: start: 201512, end: 201601
  6. NIMESULIDE [Suspect]
     Active Substance: NIMESULIDE
     Indication: Product used for unknown indication
     Dosage: 1 SACHET
     Dates: start: 201512, end: 201601
  7. IBUPROFEN [Suspect]
     Active Substance: IBUPROFEN
     Indication: Product used for unknown indication
     Dates: start: 201512, end: 201601
  8. ZOLPIDEM TARTRATE [Suspect]
     Active Substance: ZOLPIDEM TARTRATE
     Indication: Insomnia
     Dosage: IN CASE OF INSOMNIA
     Dates: start: 201512, end: 201601
  9. MEBHYDROLIN [Suspect]
     Active Substance: MEBHYDROLIN
     Indication: Product used for unknown indication
     Dates: start: 201512, end: 201601

REACTIONS (22)
  - General physical health deterioration [Recovering/Resolving]
  - Altered state of consciousness [Recovering/Resolving]
  - Tearfulness [Recovering/Resolving]
  - Decreased gait velocity [Recovering/Resolving]
  - Affect lability [Recovering/Resolving]
  - Gait disturbance [Recovering/Resolving]
  - Pain in extremity [Recovering/Resolving]
  - Jaundice [Recovering/Resolving]
  - Dry skin [Recovering/Resolving]
  - Palmar erythema [Recovering/Resolving]
  - Petechiae [Recovering/Resolving]
  - Hepatic failure [Recovering/Resolving]
  - Coagulopathy [Recovering/Resolving]
  - Hepatitis toxic [Recovering/Resolving]
  - Drug-induced liver injury [Recovering/Resolving]
  - Cholelithiasis [Recovering/Resolving]
  - Synovitis [Recovering/Resolving]
  - Supraventricular extrasystoles [Recovering/Resolving]
  - Nausea [Recovering/Resolving]
  - Polyneuropathy [Recovering/Resolving]
  - Telangiectasia [Recovering/Resolving]
  - Hyperbilirubinaemia [Recovering/Resolving]
